FAERS Safety Report 8763663 (Version 1)
Quarter: 2012Q4

REPORT INFORMATION
  Report Type: 
  Country: AT (occurrence: AT)
  Receive Date: 20120828
  Receipt Date: 20120828
  Transmission Date: 20130627
  Serious: Yes (Other)
  Sender: FDA-Public Use
  Company Number: AT-VERTEX PHARMACEUTICAL INC.-000000000000001345

PATIENT
  Age: 55 Year
  Sex: Male

DRUGS (3)
  1. INCIVO [Suspect]
     Indication: HEPATITIS C
     Dosage: Dosage Form: Tablet
     Route: 065
     Dates: start: 20120507, end: 201207
  2. COPEGUS [Concomitant]
     Indication: HEPATITIS C
     Dates: start: 20120507
  3. PEGASYS [Concomitant]
     Indication: HEPATITIS C
     Dates: start: 20120507

REACTIONS (1)
  - Rash maculo-papular [Unknown]
